FAERS Safety Report 5073870-4 (Version None)
Quarter: 2006Q3

REPORT INFORMATION
  Report Type: 
  Country: None (occurrence: None)
  Receive Date: 20060808
  Receipt Date: 20060802
  Transmission Date: 20061208
  Serious: Yes (Hospitalization, Other)
  Sender: FDA-Public Use
  Company Number: 2006CG01332

PATIENT
  Age: 28979 Day
  Sex: Male

DRUGS (3)
  1. OMEPRAZOLE [Suspect]
     Dates: end: 20060324
  2. IRBESARTAN [Concomitant]
     Indication: HYPERTENSION
     Dates: start: 20040423, end: 20040506
  3. IRBESARTAN [Concomitant]
     Dates: start: 20040507

REACTIONS (4)
  - CEREBRAL ATROPHY [None]
  - CONFUSIONAL STATE [None]
  - MELAENA [None]
  - PNEUMONIA ASPIRATION [None]
